FAERS Safety Report 21006794 (Version 8)
Quarter: 2022Q3

REPORT INFORMATION
  Report Type: Spontaneous
  Country: US (occurrence: US)
  Receive Date: 20220625
  Receipt Date: 20220815
  Transmission Date: 20221027
  Serious: Yes (Other)
  Sender: FDA-Public Use
  Company Number: US-UNITED THERAPEUTICS-UNT-2022-013267

PATIENT
  Sex: Male
  Weight: 72.562 kg

DRUGS (5)
  1. TYVASO [Suspect]
     Active Substance: TREPROSTINIL
     Indication: Pulmonary arterial hypertension
     Dosage: UNK
     Dates: start: 20220610
  2. TYVASO [Suspect]
     Active Substance: TREPROSTINIL
     Dosage: 18-72 ?G, QID
     Dates: start: 202206
  3. TYVASO [Suspect]
     Active Substance: TREPROSTINIL
     Dosage: 30 ?G, QID
     Dates: start: 2022, end: 2022
  4. TYVASO [Suspect]
     Active Substance: TREPROSTINIL
     Dosage: 36 ?G, QID
     Dates: start: 2022, end: 2022
  5. TYVASO [Suspect]
     Active Substance: TREPROSTINIL
     Dosage: 42 ?G, QID
     Dates: start: 2022

REACTIONS (8)
  - Pneumonia viral [Unknown]
  - Peripheral swelling [Recovering/Resolving]
  - Productive cough [Unknown]
  - Diarrhoea [Recovered/Resolved]
  - Paranasal sinus hypersecretion [Unknown]
  - Cough [Unknown]
  - Joint swelling [Unknown]
  - Device operational issue [Unknown]

NARRATIVE: CASE EVENT DATE: 20220101
